FAERS Safety Report 18608115 (Version 1)
Quarter: 2020Q4

REPORT INFORMATION
  Report Type: Spontaneous
  Country: CN (occurrence: CN)
  Receive Date: 20201211
  Receipt Date: 20201211
  Transmission Date: 20210114
  Serious: Yes (Other)
  Sender: FDA-Public Use
  Company Number: CN-BAXTER-2020BAX024986

PATIENT
  Age: 10 Year
  Sex: Female
  Weight: 33.5 kg

DRUGS (5)
  1. 0.9% SODIUM CHLORIDE INJECTION [Suspect]
     Active Substance: SODIUM CHLORIDE
     Indication: MEDICATION DILUTION
     Dosage: SODIUM CHLORIDE 250ML + CYCLOPHOSPHAMIDE 1.16G
     Route: 041
     Dates: start: 20201026, end: 20201026
  2. 0.9% SODIUM CHLORIDE INJECTION [Suspect]
     Active Substance: SODIUM CHLORIDE
     Dosage: SODIUM CHLORIDE 250ML + SAIDESA 1.16G
     Route: 041
     Dates: start: 20201026, end: 20201028
  3. ENDOXAN [Suspect]
     Active Substance: CYCLOPHOSPHAMIDE
     Indication: ACUTE LYMPHOCYTIC LEUKAEMIA
     Dosage: SODIUM CHLORIDE 250ML + CYCLOPHOSPHAMIDE 1.16G
     Route: 041
     Dates: start: 20201026, end: 20201026
  4. MERCAPTOPURINE. [Suspect]
     Active Substance: MERCAPTOPURINE
     Indication: ACUTE LYMPHOCYTIC LEUKAEMIA
     Dosage: TABLET
     Route: 048
     Dates: start: 20201026, end: 20201101
  5. SAIDESA (CYTARABINE) [Suspect]
     Active Substance: CYTARABINE
     Indication: ACUTE LYMPHOCYTIC LEUKAEMIA
     Dosage: SODIUM CHLORIDE 250ML + SAIDESA 1.16G
     Route: 041
     Dates: start: 20201026, end: 20201028

REACTIONS (1)
  - Myelosuppression [Recovering/Resolving]

NARRATIVE: CASE EVENT DATE: 20201101
